FAERS Safety Report 6478394-5 (Version None)
Quarter: 2009Q4

REPORT INFORMATION
  Report Type: 
  Country: None (occurrence: None)
  Receive Date: 20091207
  Receipt Date: 20091125
  Transmission Date: 20100525
  Serious: Yes (Other)
  Sender: FDA-Public Use
  Company Number: PHHY2009BR51930

PATIENT
  Age: 64 Year
  Sex: Female

DRUGS (4)
  1. ZOLEDRONIC ACID [Suspect]
     Indication: OSTEOPOROSIS
     Dosage: 5 MG, SINGLE ANNUAL
     Route: 042
  2. SIMVASTATIN [Concomitant]
     Dosage: 20 MG/DAY
  3. CALCIUM CITRATE [Concomitant]
     Dosage: 1200 MG, UNK
  4. VITAMIN D3 [Concomitant]
     Dosage: 800 UI/DAY

REACTIONS (6)
  - ARTHRALGIA [None]
  - ERYTHEMA [None]
  - FEELING HOT [None]
  - HYPERAEMIA [None]
  - MYALGIA [None]
  - OSTEOARTHRITIS [None]
